FAERS Safety Report 14662264 (Version 1)
Quarter: 2018Q1

REPORT INFORMATION
  Report Type: Spontaneous
  Country: US (occurrence: US)
  Receive Date: 20180321
  Receipt Date: 20180321
  Transmission Date: 20180509
  Serious: No
  Sender: FDA-Public Use
  Company Number: US-SUN PHARMACEUTICAL INDUSTRIES LTD-2017SUN00116

PATIENT
  Sex: Male
  Weight: 79.37 kg

DRUGS (2)
  1. KINEVAC [Suspect]
     Active Substance: SINCALIDE
     Indication: ABDOMINAL PAIN
     Dosage: 1.5 MG, OD
     Route: 042
  2. TECHNETIUM TC-99M MEBROFENIN KIT [Suspect]
     Active Substance: TECHNETIUM TC-99M MEBROFENIN
     Indication: ABDOMINAL PAIN
     Dosage: 6 MCI, OD
     Route: 042
     Dates: start: 20170317, end: 20170317

REACTIONS (2)
  - Urticaria [Recovered/Resolved]
  - Rash [Recovered/Resolved]

NARRATIVE: CASE EVENT DATE: 20170317
